FAERS Safety Report 19077688 (Version 2)
Quarter: 2021Q1

REPORT INFORMATION
  Report Type: Spontaneous
  Country: US (occurrence: US)
  Receive Date: 20210331
  Receipt Date: 20210331
  Transmission Date: 20210420
  Serious: Yes (Other)
  Sender: FDA-Public Use
  Company Number: US-HLS-202104461

PATIENT
  Sex: Female

DRUGS (1)
  1. CLOZARIL [Suspect]
     Active Substance: CLOZAPINE
     Indication: PRODUCT USED FOR UNKNOWN INDICATION
     Dosage: ON CLOZARIL FOR ABOUT 10 YEARS
     Route: 065
     Dates: end: 2020

REACTIONS (4)
  - Photosensitivity reaction [Unknown]
  - Muscular weakness [Unknown]
  - Tardive dyskinesia [Unknown]
  - Fall [Unknown]

NARRATIVE: CASE EVENT DATE: 2020
